FAERS Safety Report 23706201 (Version 2)
Quarter: 2024Q2

REPORT INFORMATION
  Report Type: Spontaneous
  Country: CH (occurrence: CH)
  Receive Date: 20240404
  Receipt Date: 20240418
  Transmission Date: 20240715
  Serious: Yes (Life-Threatening, Hospitalization)
  Sender: FDA-Public Use
  Company Number: None

PATIENT
  Age: 60 Year
  Sex: Female
  Weight: 71.6 kg

DRUGS (16)
  1. TORSEMIDE [Suspect]
     Active Substance: TORSEMIDE
     Indication: Product used for unknown indication
     Dosage: 5 MILLIGRAM, QD (1-0-0-0)
     Route: 048
     Dates: end: 20240307
  2. NOVALGIN (METAMIZOLE SODIUM) [Suspect]
     Active Substance: METAMIZOLE SODIUM
     Indication: Product used for unknown indication
     Dosage: UNK
     Route: 048
     Dates: start: 20240208, end: 20240219
  3. NOVALGIN (METAMIZOLE SODIUM) [Suspect]
     Active Substance: METAMIZOLE SODIUM
     Dosage: 500 MILLIGRAM, QD (ONCE DAILY)
     Route: 048
     Dates: start: 20240221, end: 20240225
  4. NOVALGIN (METAMIZOLE SODIUM) [Suspect]
     Active Substance: METAMIZOLE SODIUM
     Dosage: 1 DOSAGE FORM, QD (AS NECESSARY)
     Route: 048
     Dates: start: 20240225, end: 20240307
  5. ONDANSETRON [Suspect]
     Active Substance: ONDANSETRON
     Indication: Product used for unknown indication
     Dosage: 4 MILLIGRAM/2 MILLILITER, BID (EVERY 12 HOURS)
     Route: 042
     Dates: end: 20240307
  6. ESOMEPRAZOLE [Suspect]
     Active Substance: ESOMEPRAZOLE
     Indication: Product used for unknown indication
     Dosage: 40 MILLIGRAM, QD (1-0-0-0)
     Route: 048
     Dates: end: 20240307
  7. QUETIAPINE [Suspect]
     Active Substance: QUETIAPINE
     Indication: Product used for unknown indication
     Dosage: 25 MILLIGRAM, QD (ONCE DAILY) (0-0-0-1)
     Route: 048
     Dates: start: 20240221, end: 20240307
  8. AMLODIPINE [Suspect]
     Active Substance: AMLODIPINE BESYLATE
     Indication: Product used for unknown indication
     Dosage: 5 MILLIGRAM, QD (1-0-0-0)
     Route: 048
     Dates: end: 20240307
  9. CLONIDINE [Suspect]
     Active Substance: CLONIDINE
     Indication: Product used for unknown indication
     Dosage: 0.5 MILLILITER AND 150 MICROGRAM PER MILLILITER, BID (EVERY 12 HOURS)
     Route: 058
     Dates: end: 20240307
  10. ROCEPHIN [Suspect]
     Active Substance: CEFTRIAXONE SODIUM
     Indication: Product used for unknown indication
     Dosage: 2 GRAM, BID (EVERY 12 HOURS)
     Route: 042
     Dates: start: 20240128, end: 20240304
  11. FRAGMIN [Concomitant]
     Active Substance: DALTEPARIN SODIUM
     Dosage: 7500 INTERNATIONAL UNIT, BID (1-0-0-1) (EVERY 12 HOURS)
     Route: 058
  12. INDERAL [Concomitant]
     Active Substance: PROPRANOLOL HYDROCHLORIDE
     Dosage: 10 MILLIGRAM, QID (EVERY 6 HOURS) (1-1-1-1-)
     Route: 048
     Dates: end: 20240307
  13. INDERAL [Concomitant]
     Active Substance: PROPRANOLOL HYDROCHLORIDE
     Dosage: 10 MILLIGRAM, QID (EVERY 6 HOURS)
     Route: 048
     Dates: start: 20240312
  14. DAFALGAN [Concomitant]
     Active Substance: ACETAMINOPHEN
     Dosage: 1G MAX, Q8H (EVERY 8 HOURS)
     Route: 065
     Dates: end: 20240307
  15. DAFALGAN [Concomitant]
     Active Substance: ACETAMINOPHEN
     Dosage: 1G MAX, Q8H (EVERY 8 HOURS) (3XDAY)
     Route: 065
     Dates: start: 20240309
  16. PERFALGAN [Concomitant]
     Active Substance: ACETAMINOPHEN
     Dosage: MAX 4X/DAY, QID (EVERY 6 HOURS)
     Route: 042
     Dates: end: 20240307

REACTIONS (1)
  - Agranulocytosis [Recovered/Resolved]

NARRATIVE: CASE EVENT DATE: 20240307
